FAERS Safety Report 10735087 (Version 3)
Quarter: 2015Q2

REPORT INFORMATION
  Report Type: Spontaneous
  Country: US (occurrence: US)
  Receive Date: 20150124
  Receipt Date: 20150424
  Transmission Date: 20150821
  Serious: Yes (Disabling)
  Sender: FDA-Public Use
  Company Number: US-009507513-1204USA03752

PATIENT
  Sex: Male
  Weight: 90.34 kg

DRUGS (3)
  1. PROPECIA [Suspect]
     Active Substance: FINASTERIDE
     Indication: ALOPECIA
     Dosage: 1 MG, UNK
     Route: 048
     Dates: start: 2004, end: 20110327
  2. PROSCAR [Suspect]
     Active Substance: FINASTERIDE
     Indication: ALOPECIA
     Dosage: 5 MG, UNK
     Route: 048
     Dates: start: 20041001, end: 20060318
  3. FINASTERIDE. [Suspect]
     Active Substance: FINASTERIDE
     Indication: ALOPECIA
     Dosage: 5 MG, UNK
     Dates: start: 20060714, end: 20110305

REACTIONS (26)
  - Erectile dysfunction [Not Recovered/Not Resolved]
  - Libido decreased [Not Recovered/Not Resolved]
  - Genital hypoaesthesia [Unknown]
  - Blood testosterone decreased [Unknown]
  - Night sweats [Unknown]
  - Amnesia [Unknown]
  - Sinus operation [Unknown]
  - Skin disorder [Unknown]
  - Sexual dysfunction [Not Recovered/Not Resolved]
  - Drug administration error [Unknown]
  - Drug ineffective [Unknown]
  - Anxiety [Not Recovered/Not Resolved]
  - Anorgasmia [Unknown]
  - Headache [Unknown]
  - Asthenia [Unknown]
  - Ejaculation failure [Not Recovered/Not Resolved]
  - Insomnia [Unknown]
  - Nausea [Unknown]
  - General physical health deterioration [Unknown]
  - Cognitive disorder [Not Recovered/Not Resolved]
  - Mood altered [Unknown]
  - Fatigue [Unknown]
  - Ejaculation disorder [Not Recovered/Not Resolved]
  - Penis disorder [Unknown]
  - Depression [Not Recovered/Not Resolved]
  - Painful ejaculation [Unknown]

NARRATIVE: CASE EVENT DATE: 2010
